FAERS Safety Report 23676955 (Version 1)
Quarter: 2024Q1

REPORT INFORMATION
  Report Type: Spontaneous
  Country: US (occurrence: US)
  Receive Date: 20240327
  Receipt Date: 20240327
  Transmission Date: 20240410
  Serious: No
  Sender: FDA-Public Use
  Company Number: US-Hill Dermaceuticals, Inc.-2154861

PATIENT
  Sex: Female

DRUGS (10)
  1. FLUOCINOLONE ACETONIDE [Suspect]
     Active Substance: FLUOCINOLONE ACETONIDE
     Indication: Product used for unknown indication
  2. METHOTREXATE [Suspect]
     Active Substance: METHOTREXATE
  3. SOTYKTU [Suspect]
     Active Substance: DEUCRAVACITINIB
  4. COSENTYX [Suspect]
     Active Substance: SECUKINUMAB
     Dates: start: 201805, end: 202305
  5. ENBREL [Suspect]
     Active Substance: ETANERCEPT
  6. OTEZLA [Suspect]
     Active Substance: APREMILAST
  7. CLOBETASOL [Suspect]
     Active Substance: CLOBETASOL
  8. ENSTILAR [Suspect]
     Active Substance: BETAMETHASONE DIPROPIONATE\CALCIPOTRIENE HYDRATE
  9. TACLONEX [Suspect]
     Active Substance: BETAMETHASONE DIPROPIONATE\CALCIPOTRIENE\CALCIPOTRIENE HYDRATE
  10. HUMIRA [Suspect]
     Active Substance: ADALIMUMAB

REACTIONS (1)
  - Therapeutic product ineffective [Unknown]
